FAERS Safety Report 6832672-6 (Version None)
Quarter: 2010Q3

REPORT INFORMATION
  Report Type: 
  Country: None (occurrence: None)
  Receive Date: 20100712
  Receipt Date: 20071212
  Transmission Date: 20110219
  Serious: No
  Sender: FDA-Public Use
  Company Number: US-PFIZER INC-2007021097

PATIENT
  Sex: Female
  Weight: 72.1 kg

DRUGS (1)
  1. CHANTIX [Suspect]
     Indication: NICOTINE DEPENDENCE
     Dates: start: 20070306

REACTIONS (4)
  - ABDOMINAL DISTENSION [None]
  - AMENORRHOEA [None]
  - DIARRHOEA [None]
  - NAUSEA [None]
